FAERS Safety Report 25127933 (Version 2)
Quarter: 2025Q2

REPORT INFORMATION
  Report Type: Spontaneous
  Country: SI (occurrence: SI)
  Receive Date: 20250327
  Receipt Date: 20250502
  Transmission Date: 20250716
  Serious: Yes (Hospitalization, Other)
  Sender: UCB
  Company Number: SI-UCBSA-2025017625

PATIENT
  Age: 36 Year
  Sex: Male

DRUGS (6)
  1. LEVETIRACETAM [Suspect]
     Active Substance: LEVETIRACETAM
     Indication: Post-traumatic epilepsy
     Dosage: 1 GRAM, 3X/DAY (TID)
     Route: 042
     Dates: start: 20180913
  2. LEVETIRACETAM [Suspect]
     Active Substance: LEVETIRACETAM
     Dosage: 250 MILLIGRAM, 2X/DAY (BID)
  3. LEVETIRACETAM [Suspect]
     Active Substance: LEVETIRACETAM
     Dosage: 500 MILLIGRAM, 2X/DAY (BID)
  4. LEVETIRACETAM [Suspect]
     Active Substance: LEVETIRACETAM
     Dosage: 750 MILLIGRAM, 2X/DAY (BID)
     Dates: start: 202110
  5. BRIVARACETAM [Suspect]
     Active Substance: BRIVARACETAM
     Indication: Post-traumatic epilepsy
     Dosage: 75 MILLIGRAM, 2X/DAY (BID)
  6. BRIVARACETAM [Suspect]
     Active Substance: BRIVARACETAM
     Dosage: 100 MILLIGRAM, 2X/DAY (BID)

REACTIONS (12)
  - Mental disorder [Unknown]
  - Seizure [Recovered/Resolved]
  - Suicidal ideation [Recovered/Resolved]
  - Organic brain syndrome [Unknown]
  - Agitation [Unknown]
  - Confusional state [Unknown]
  - Aggression [Recovering/Resolving]
  - Mood swings [Recovering/Resolving]
  - Delusion [Recovering/Resolving]
  - Paranoia [Recovered/Resolved]
  - Drug tolerance decreased [Unknown]
  - Incorrect dose administered [Unknown]

NARRATIVE: CASE EVENT DATE: 20190504
